FAERS Safety Report 17967214 (Version 2)
Quarter: 2020Q3

REPORT INFORMATION
  Report Type: Report from Study
  Country: BR (occurrence: BR)
  Receive Date: 20200701
  Receipt Date: 20200904
  Transmission Date: 20201103
  Serious: Yes (Other)
  Sender: FDA-Public Use
  Company Number: BR-BIOGEN-2020BI00891471

PATIENT
  Age: 50 Year
  Sex: Female

DRUGS (5)
  1. TYSABRI [Suspect]
     Active Substance: NATALIZUMAB
     Route: 042
     Dates: start: 20200217
  2. TYSABRI [Suspect]
     Active Substance: NATALIZUMAB
     Indication: MULTIPLE SCLEROSIS
     Route: 042
     Dates: start: 2011, end: 201908
  3. DULOXETINE. [Suspect]
     Active Substance: DULOXETINE
     Dosage: 60MG IN THE MORNING AND 30MG AT NIGHT
     Route: 065
  4. DULOXETINE. [Suspect]
     Active Substance: DULOXETINE
     Indication: ANXIETY
     Dosage: 60MG IN THE MORNING AND 30MG AT NIGHT
     Route: 065
  5. CLONAZEPAM. [Suspect]
     Active Substance: CLONAZEPAM
     Indication: INSOMNIA
     Dosage: AT NIGHT
     Route: 065

REACTIONS (12)
  - Insomnia [Not Recovered/Not Resolved]
  - Crying [Unknown]
  - Eye pain [Not Recovered/Not Resolved]
  - Irritability [Not Recovered/Not Resolved]
  - Platelet count abnormal [Unknown]
  - Multiple sclerosis relapse [Not Recovered/Not Resolved]
  - Dysphagia [Not Recovered/Not Resolved]
  - Mood swings [Not Recovered/Not Resolved]
  - Pharyngeal hypoaesthesia [Not Recovered/Not Resolved]
  - Thrombocytopenic purpura [Not Recovered/Not Resolved]
  - Dizziness [Unknown]
  - Malaise [Not Recovered/Not Resolved]

NARRATIVE: CASE EVENT DATE: 2020
